FAERS Safety Report 8796210 (Version 1)
Quarter: 2012Q4

REPORT INFORMATION
  Report Type: 
  Country: GB (occurrence: GB)
  Receive Date: 20120919
  Receipt Date: 20120919
  Transmission Date: 20130627
  Serious: Yes (Other)
  Sender: FDA-Public Use
  Company Number: GB-WATSON-2012-16251

PATIENT
  Sex: Male

DRUGS (2)
  1. OMEPRAZOLE (UNKNOWN) [Suspect]
     Indication: PRODUCT USED FOR UNKNOWN INDICATION
     Dosage: unk
     Route: 065
  2. MADOPAR [Suspect]
     Indication: PRODUCT USED FOR UNKNOWN INDICATION
     Dosage: Four in one day
     Route: 065

REACTIONS (4)
  - Cardiac disorder [Unknown]
  - Reflux gastritis [Unknown]
  - Drug interaction [Unknown]
  - Drug effect decreased [Unknown]
